FAERS Safety Report 5754104-1 (Version None)
Quarter: 2008Q2

REPORT INFORMATION
  Report Type: 
  Country: None (occurrence: None)
  Receive Date: 20080530
  Receipt Date: 20080528
  Transmission Date: 20081010
  Serious: Yes (Life-Threatening, Hospitalization)
  Sender: FDA-Public Use
  Company Number: PHEH2008US04889

PATIENT
  Age: 74 Year
  Sex: Female
  Weight: 58.05 kg

DRUGS (1)
  1. RECLAST [Suspect]
     Indication: OSTEOPOROSIS
     Dosage: 5 MG, ONCE YEARLY
     Dates: start: 20080527

REACTIONS (7)
  - ANXIETY [None]
  - CHEST PAIN [None]
  - DYSPHAGIA [None]
  - DYSPNOEA [None]
  - INFUSION SITE SWELLING [None]
  - INJECTION SITE PRURITUS [None]
  - MYOCARDIAL INFARCTION [None]
